FAERS Safety Report 6266505-6 (Version None)
Quarter: 2009Q3

REPORT INFORMATION
  Report Type: 
  Country: None (occurrence: None)
  Receive Date: 20090710
  Receipt Date: 20090625
  Transmission Date: 20100115
  Serious: Yes (Disabling)
  Sender: FDA-Public Use
  Company Number: DSA_33908_2009

PATIENT
  Sex: Male

DRUGS (25)
  1. XENAZINE [Suspect]
     Indication: PERONEAL MUSCULAR ATROPHY
     Dosage: (25 MG QD)
     Dates: start: 20090301
  2. ABILIFY [Concomitant]
  3. ASPIRIN [Concomitant]
  4. ATENOLOL [Concomitant]
  5. CYMBALTA [Concomitant]
  6. EPIVIR [Concomitant]
  7. FUROSEMIDE [Concomitant]
  8. KLOR-CON [Concomitant]
  9. TRAZODONE [Concomitant]
  10. GLIPIZIDE [Concomitant]
  11. ALPRAZOLAM [Concomitant]
  12. DIVALPROEX SODIUM [Concomitant]
  13. DOCUSATE SODIUM [Concomitant]
  14. FAMOTIDINE [Concomitant]
  15. FLOMAX [Concomitant]
  16. OMEPRAZOLE [Concomitant]
  17. METFORMIN [Concomitant]
  18. ACETAMINOPHEN [Concomitant]
  19. ALAMAG [Concomitant]
  20. CEPACOL [Concomitant]
  21. GUIATUSS [Concomitant]
  22. HYDROCODONE BITARTRATE AND ACETAMINOPHEN [Concomitant]
  23. MOM [Concomitant]
  24. PROMETHAZINE [Concomitant]
  25. TRAMADOL [Concomitant]

REACTIONS (4)
  - INCONTINENCE [None]
  - PERFORMANCE STATUS DECREASED [None]
  - TARDIVE DYSKINESIA [None]
  - WHEELCHAIR USER [None]
